FAERS Safety Report 9420825 (Version 1)
Quarter: 2013Q3

REPORT INFORMATION
  Report Type: Spontaneous
  Country: US (occurrence: US)
  Receive Date: 20130725
  Receipt Date: 20130725
  Transmission Date: 20140515
  Serious: No
  Sender: FDA-Public Use
  Company Number: US-ABBOTT-13P-163-1054180-00

PATIENT
  Age: 56 Year
  Sex: Female
  Weight: 58.11 kg

DRUGS (3)
  1. SYNTHROID [Suspect]
     Indication: HORMONE REPLACEMENT THERAPY
     Dates: start: 2011, end: 201302
  2. SYNTHROID [Suspect]
     Dosage: ONE TABLET SUNDAY THROUGH FRIDAY. TWO TABLETS ON SATURDAY.
     Dates: start: 201302
  3. VITAMINS [Concomitant]
     Indication: HORMONE REPLACEMENT THERAPY

REACTIONS (6)
  - Cardiac flutter [Not Recovered/Not Resolved]
  - Plantar fasciitis [Recovering/Resolving]
  - Blood cholesterol increased [Not Recovered/Not Resolved]
  - Exostosis [Recovered/Resolved]
  - Headache [Not Recovered/Not Resolved]
  - Tremor [Not Recovered/Not Resolved]
